FAERS Safety Report 14660010 (Version 1)
Quarter: 2018Q1

REPORT INFORMATION
  Report Type: Spontaneous
  Country: FR (occurrence: FR)
  Receive Date: 20180320
  Receipt Date: 20180320
  Transmission Date: 20180509
  Serious: Yes (Hospitalization)
  Sender: FDA-Public Use
  Company Number: FR-MYLANLABS-2018M1016599

PATIENT
  Age: 71 Year
  Sex: Female

DRUGS (5)
  1. LETROZOLE. [Suspect]
     Active Substance: LETROZOLE
     Indication: BREAST CANCER METASTATIC
     Dosage: UNK
     Route: 065
  2. EFFERALGAN [Concomitant]
     Active Substance: ACETAMINOPHEN
     Indication: BLISTER
     Dosage: UNK
     Route: 065
  3. FUSIDIC ACID [Concomitant]
     Active Substance: FUSIDIC ACID
     Indication: BLISTER
     Dosage: UNK
  4. JELONET                            /00473501/ [Concomitant]
     Indication: BLISTER
     Dosage: UNK
     Route: 065
  5. CARMELLOSE SODIUM [Concomitant]
     Active Substance: CARBOXYMETHYLCELLULOSE SODIUM
     Indication: BLISTER
     Dosage: UNK
     Route: 065

REACTIONS (1)
  - Skin ulcer [Recovered/Resolved with Sequelae]

NARRATIVE: CASE EVENT DATE: 20170301
